FAERS Safety Report 19718424 (Version 1)
Quarter: 2021Q3

REPORT INFORMATION
  Report Type: Spontaneous
  Country: US (occurrence: US)
  Receive Date: 20210818
  Receipt Date: 20210818
  Transmission Date: 20211014
  Serious: No
  Sender: FDA-Public Use
  Company Number: None

PATIENT
  Age: 56 Year
  Sex: Female

DRUGS (1)
  1. CAPECITABINE TAB 500MG [Suspect]
     Active Substance: CAPECITABINE
     Route: 048
     Dates: start: 202107

REACTIONS (5)
  - Therapy interrupted [None]
  - Oral pain [None]
  - Fatigue [None]
  - White blood cell count decreased [None]
  - Nausea [None]

NARRATIVE: CASE EVENT DATE: 20210818
